FAERS Safety Report 8779402 (Version 4)
Quarter: 2012Q4

REPORT INFORMATION
  Report Type: 
  Country: JP (occurrence: JP)
  Receive Date: 20120912
  Receipt Date: 20121004
  Transmission Date: 20130627
  Serious: Yes (Hospitalization)
  Sender: FDA-Public Use
  Company Number: JP-PFIZER INC-2012223182

PATIENT
  Age: 73 Year
  Sex: Female

DRUGS (7)
  1. LYRICA [Suspect]
     Indication: POST HERPETIC NEURALGIA
     Dosage: 75 mg, 2x/day
     Route: 048
     Dates: start: 20120906, end: 20120909
  2. IBUPROFEN [Concomitant]
     Indication: HERPES ZOSTER
     Dosage: UNK
     Route: 048
     Dates: start: 20120906, end: 20120909
  3. IBUPROFEN [Concomitant]
     Indication: NEURALGIA
  4. NEUROTROPIN [Concomitant]
     Indication: HERPES ZOSTER
     Dosage: 8 IU, UNK
     Route: 048
     Dates: start: 20120906, end: 20120909
  5. NEUROTROPIN [Concomitant]
     Indication: NEURALGIA
  6. ZOVIRAX [Concomitant]
     Indication: HERPES ZOSTER
     Dosage: 750 mg, UNK
     Route: 041
  7. ZOVIRAX [Concomitant]
     Indication: NEURALGIA

REACTIONS (4)
  - Tremor [Recovered/Resolved]
  - Joint ankylosis [Recovered/Resolved]
  - Altered state of consciousness [Recovered/Resolved]
  - Speech disorder [Recovered/Resolved]
